FAERS Safety Report 7108100-2 (Version None)
Quarter: 2010Q4

REPORT INFORMATION
  Report Type: 
  Country: None (occurrence: None)
  Receive Date: 20101117
  Receipt Date: 20101108
  Transmission Date: 20110411
  Serious: Yes (Hospitalization, Disabling)
  Sender: FDA-Public Use
  Company Number: DE-ASTRAZENECA-2010SE53309

PATIENT
  Age: 82 Year
  Sex: Female

DRUGS (10)
  1. SEROQUEL [Suspect]
     Route: 048
     Dates: end: 20100723
  2. SEROQUEL [Suspect]
     Route: 048
     Dates: start: 20100724, end: 20100801
  3. SEROQUEL [Suspect]
     Route: 048
     Dates: start: 20100802
  4. SEROQUEL [Suspect]
     Route: 048
     Dates: start: 20100804
  5. SEROQUEL [Suspect]
     Dosage: TOTAL DOSAGE OF 50 MG, BUT INTAKE DOSAGE WAS 12.5 MG
     Route: 048
     Dates: start: 20100805
  6. HALDOL [Suspect]
     Route: 048
     Dates: start: 20100804
  7. HALDOL [Suspect]
     Dosage: TOTAL DOSAGE OF 2 MG, BUT INTAKE DOSAGE WAS 0.5 MG
     Route: 048
     Dates: start: 20100805
  8. DELIX [Concomitant]
     Route: 048
  9. OBSIDAN [Concomitant]
     Route: 048
  10. PANTOPRAZOLE SODIUM [Concomitant]

REACTIONS (2)
  - FALL [None]
  - FEMUR FRACTURE [None]
